FAERS Safety Report 6921402-5 (Version None)
Quarter: 2010Q3

REPORT INFORMATION
  Report Type: 
  Country: None (occurrence: None)
  Receive Date: 20100812
  Receipt Date: 20100729
  Transmission Date: 20110219
  Serious: Yes (Hospitalization)
  Sender: FDA-Public Use
  Company Number: PHFR2010GB01518

PATIENT
  Sex: Male

DRUGS (1)
  1. CLOZARIL [Suspect]
     Indication: SCHIZOPHRENIA
     Dosage: 100 MG AM + 200 MG PM
     Route: 048
     Dates: start: 20100707, end: 20100729

REACTIONS (9)
  - C-REACTIVE PROTEIN INCREASED [None]
  - EOSINOPHIL COUNT INCREASED [None]
  - FEELING HOT [None]
  - HEADACHE [None]
  - INFECTION [None]
  - LABILE BLOOD PRESSURE [None]
  - PYREXIA [None]
  - TACHYCARDIA [None]
  - VOMITING [None]
